FAERS Safety Report 26081726 (Version 1)
Quarter: 2025Q4

REPORT INFORMATION
  Report Type: Other
  Country: GB (occurrence: GB)
  Receive Date: 20251124
  Receipt Date: 20251124
  Transmission Date: 20260117
  Serious: Yes (Other)
  Sender: FDC LIMITED
  Company Number: None

PATIENT
  Age: 83 Year

DRUGS (13)
  1. LATANOPROST [Suspect]
     Active Substance: LATANOPROST
     Indication: Product used for unknown indication
     Dosage: ONE DROP TO BE USED AT NIGHT IN BOTH EYES,5 ML
  2. AZARGA [Suspect]
     Active Substance: BRINZOLAMIDE\TIMOLOL MALEATE
     Indication: Product used for unknown indication
     Dosage: ONE DROP TO BE USED TO THE RIGHT AND LEFT EYES TWICE A DAY,10 ML
  3. COMIRNATY (TOZINAMERAN) [Concomitant]
     Active Substance: TOZINAMERAN
     Dosage: 30MICROGRAMS/0.3ML DOSE DISPERSION FOR INJECTION MULTIDOSE VIALS
  4. LACTULOSE [Concomitant]
     Active Substance: LACTULOSE
     Dosage: LACTULOSE 3.1-3.7G/5ML ORAL SOLUTION, 15ML TWICE DAILY WHEN NEEDED,500 ML
  5. IBANDRONIC ACID [Concomitant]
     Active Substance: IBANDRONIC ACID
     Dosage: IBANDRONIC ACID 150MG TABLETS, TAKE ONE TABLET ONCE A MONTH
  6. Fostair 100micrograms/dose / 6micrograms/dose inhaler [Concomitant]
     Dosage: TWO PUFFS TO BE INHALED TWICE A DAY,2 X 120 DOSE
  7. Ensure Plus Juce liquid [Concomitant]
     Dosage: ENSURE PLUS JUCE LIQUID ONE A DAY ,24 X 220 ML
  8. Comirnaty KP.2 COVID-19 mRNA Vaccine 30micrograms/0.3ml dose [Concomitant]
     Dosage: 30MICROGRAMS/0.3ML DOSE DISPERSION FOR INJECTION MULTIDOSE VIALS
  9. PILOCARPINE [Concomitant]
     Active Substance: PILOCARPINE
     Dosage: ONE DROP TO BE USED THREE TIMES A DAY TO BOTH EYES,20 MLL
  10. CALCIUM CARBONATE\CHOLECALCIFEROL [Concomitant]
     Active Substance: CALCIUM CARBONATE\CHOLECALCIFEROL
     Dosage: 1 TWICE A DAY,56 TABLET - CALCID
  11. Easyhaler Salbutamol sulfate 100micrograms/dose [Concomitant]
     Dosage: 1-2 PUFFS AS REQUIRED,1 X 200 DOSE
  12. AMLODIPINE [Concomitant]
     Active Substance: AMLODIPINE BESYLATE
     Dosage: AMLODIPINE 2.5MG TABLETS, ONCE A DAY,28 TABLET
  13. Co-codamol 15mg/500mg tablets [Concomitant]
     Dosage: 1-2 TABLETS UP TO FOUR TIMES DAILY,100 TABLET

REACTIONS (2)
  - Visual impairment [Unknown]
  - Dyschromatopsia [Unknown]
